FAERS Safety Report 7704894-3 (Version None)
Quarter: 2011Q3

REPORT INFORMATION
  Report Type: 
  Country: None (occurrence: None)
  Receive Date: 20110823
  Receipt Date: 20110818
  Transmission Date: 20111222
  Serious: No
  Sender: FDA-Public Use
  Company Number: US-PFIZER INC-2007035644

PATIENT
  Sex: Male

DRUGS (2)
  1. NEURONTIN [Suspect]
     Indication: DIABETES MELLITUS
     Dates: start: 19990101, end: 20000101
  2. NEURONTIN [Suspect]
     Indication: BACK PAIN

REACTIONS (2)
  - HYPERTENSION [None]
  - AMNESIA [None]
